FAERS Safety Report 7986878-3 (Version None)
Quarter: 2011Q4

REPORT INFORMATION
  Report Type: 
  Country: None (occurrence: None)
  Receive Date: 20111216
  Receipt Date: 20111208
  Transmission Date: 20120403
  Serious: Yes (Hospitalization)
  Sender: FDA-Public Use
  Company Number: SE-EISAI INC-E2020-10100-SPO-SE

PATIENT
  Sex: Female

DRUGS (8)
  1. SIMVASTATIN [Concomitant]
  2. ACETAMINOPHEN [Concomitant]
  3. METFORMIN HCL [Concomitant]
  4. BEHEPAN [Concomitant]
  5. ASPIRIN [Concomitant]
  6. ARICEPT [Suspect]
     Route: 048
     Dates: start: 20110118, end: 20110601
  7. ARICEPT [Suspect]
     Route: 048
     Dates: start: 20110601, end: 20111023
  8. FOLIC ACID [Concomitant]

REACTIONS (1)
  - DEPRESSED LEVEL OF CONSCIOUSNESS [None]
